FAERS Safety Report 9925137 (Version 2)
Quarter: 2014Q2

REPORT INFORMATION
  Report Type: Spontaneous
  Country: US (occurrence: None)
  Receive Date: 20140221
  Receipt Date: 20140401
  Transmission Date: 20141212
  Serious: Yes (Hospitalization)
  Sender: FDA-Public Use
  Company Number: 2014-US-001800

PATIENT
  Age: 57 Year
  Sex: Female

DRUGS (3)
  1. XYREM (SODIUM OXYBATE) ORAL SOLUTION, 500MG/ML [Suspect]
     Indication: SLEEP DISORDER
     Route: 048
     Dates: start: 201204, end: 2012
  2. GABAPENTIN (GABAPENTIN) [Suspect]
     Indication: PRODUCT USED FOR UNKNOWN INDICATION
  3. ANTIHYPERTENSIVES [Suspect]
     Indication: HYPERTENSION

REACTIONS (8)
  - Lobar pneumonia [None]
  - Gout [None]
  - Hernia [None]
  - Ulcer [None]
  - Drug hypersensitivity [None]
  - Hypertension [None]
  - Somnolence [None]
  - Off label use [None]
